FAERS Safety Report 25586319 (Version 1)
Quarter: 2025Q3

REPORT INFORMATION
  Report Type: Spontaneous
  Country: EU (occurrence: EU)
  Receive Date: 20250721
  Receipt Date: 20250721
  Transmission Date: 20251020
  Serious: Yes (Other)
  Sender: BAYER HEALTHCARE PHARMACEUTICALS INC.
  Company Number: EU-BAYER-2025A089549

PATIENT
  Sex: Male

DRUGS (13)
  1. NUBEQA [Suspect]
     Active Substance: DAROLUTAMIDE
     Indication: Hormone-dependent prostate cancer
     Dosage: 600 MG, BID
     Dates: start: 202309
  2. CYCLOPHOSPHAMIDE [Suspect]
     Active Substance: CYCLOPHOSPHAMIDE
  3. CYCLOPHOSPHAMIDE [Suspect]
     Active Substance: CYCLOPHOSPHAMIDE
  4. CYCLOPHOSPHAMIDE [Suspect]
     Active Substance: CYCLOPHOSPHAMIDE
  5. CYCLOPHOSPHAMIDE [Suspect]
     Active Substance: CYCLOPHOSPHAMIDE
  6. CYCLOPHOSPHAMIDE [Suspect]
     Active Substance: CYCLOPHOSPHAMIDE
  7. DOCETAXEL [Concomitant]
     Active Substance: DOCETAXEL
     Dates: start: 202310, end: 202311
  8. DOCETAXEL [Concomitant]
     Active Substance: DOCETAXEL
  9. DOCETAXEL [Concomitant]
     Active Substance: DOCETAXEL
  10. DOCETAXEL [Concomitant]
     Active Substance: DOCETAXEL
  11. DOCETAXEL [Concomitant]
     Active Substance: DOCETAXEL
  12. DEXAMETHASONE [Concomitant]
     Active Substance: DEXAMETHASONE
     Dates: start: 202310, end: 202311
  13. PROLIA [Concomitant]
     Active Substance: DENOSUMAB

REACTIONS (2)
  - Pulmonary embolism [None]
  - Peripheral sensory neuropathy [None]
